FAERS Safety Report 24329155 (Version 10)
Quarter: 2025Q2

REPORT INFORMATION
  Report Type: Spontaneous
  Country: US (occurrence: US)
  Receive Date: 20240917
  Receipt Date: 20250429
  Transmission Date: 20250716
  Serious: Yes (Other)
  Sender: TRAVERE THERAPEUTICS
  Company Number: US-TRAVERE-2024TVT00867

PATIENT
  Age: 33 Year
  Sex: Female

DRUGS (21)
  1. FILSPARI [Suspect]
     Active Substance: SPARSENTAN
     Indication: IgA nephropathy
     Route: 048
     Dates: start: 20240821
  2. FILSPARI [Suspect]
     Active Substance: SPARSENTAN
     Route: 048
     Dates: start: 20240903
  3. FILSPARI [Suspect]
     Active Substance: SPARSENTAN
     Route: 048
     Dates: start: 20240925
  4. FILSPARI [Suspect]
     Active Substance: SPARSENTAN
     Dosage: 2 TABLETS OF 400MG (800 MG)
     Route: 048
     Dates: end: 20241021
  5. DIETARY SUPPLEMENT [Concomitant]
     Active Substance: DIETARY SUPPLEMENT
  6. LEXAPRO [Concomitant]
     Active Substance: ESCITALOPRAM OXALATE
  7. LIOTHYRONINE [Concomitant]
     Active Substance: LIOTHYRONINE
  8. SYNTHROID [Concomitant]
     Active Substance: LEVOTHYROXINE SODIUM
  9. VASCEPA [Concomitant]
     Active Substance: ICOSAPENT ETHYL
  10. SULFAMETHOXAZOLE [Concomitant]
     Active Substance: SULFAMETHOXAZOLE
  11. PROPRANOLOL [Concomitant]
     Active Substance: PROPRANOLOL HYDROCHLORIDE
  12. PREDNISOLONE [Concomitant]
     Active Substance: PREDNISOLONE
  13. HYDROCODONE [Concomitant]
     Active Substance: HYDROCODONE
  14. BUSPIRONE [Concomitant]
     Active Substance: BUSPIRONE HYDROCHLORIDE
  15. BACTRIM [Concomitant]
     Active Substance: SULFAMETHOXAZOLE\TRIMETHOPRIM
  16. ATORVASTATIN [Concomitant]
     Active Substance: ATORVASTATIN
  17. ASPIRIN [Concomitant]
     Active Substance: ASPIRIN
  18. ACETAMINOPHEN [Concomitant]
     Active Substance: ACETAMINOPHEN
  19. LOSARTAN [Concomitant]
     Active Substance: LOSARTAN
  20. MYCOPHENOLIC ACID [Concomitant]
     Active Substance: MYCOPHENOLIC ACID
  21. FUROSEMIDE [Concomitant]
     Active Substance: FUROSEMIDE

REACTIONS (15)
  - Glomerular filtration rate decreased [Recovering/Resolving]
  - Dehydration [Unknown]
  - Carpal tunnel syndrome [Unknown]
  - Hepatic function abnormal [Recovering/Resolving]
  - Haemoptysis [None]
  - Bone pain [Unknown]
  - Inflammation [Unknown]
  - Liver disorder [Unknown]
  - Brain fog [Unknown]
  - Extra dose administered [Unknown]
  - Muscle spasms [Recovering/Resolving]
  - Hypokinesia [Recovering/Resolving]
  - Gingival bleeding [Recovering/Resolving]
  - Contraindicated product administered [Unknown]
  - Wheezing [None]

NARRATIVE: CASE EVENT DATE: 20240821
